FAERS Safety Report 26050946 (Version 1)
Quarter: 2025Q4

REPORT INFORMATION
  Report Type: Report from Study
  Country: US (occurrence: US)
  Receive Date: 20251117
  Receipt Date: 20251117
  Transmission Date: 20260118
  Serious: Yes (Other)
  Sender: ABBVIE
  Company Number: US-ABBVIE-6547635

PATIENT
  Age: 18 Year
  Sex: Male

DRUGS (1)
  1. SKYRIZI [Suspect]
     Active Substance: RISANKIZUMAB-RZAA
     Indication: Crohn^s disease
     Dosage: FORM STRENGTH: 360 MG SOLUTION FOR INJECTION IN PRE-FILLED INJECTOR
     Route: 058

REACTIONS (4)
  - Developmental delay [Unknown]
  - Device issue [Not Recovered/Not Resolved]
  - Hypotonia [Unknown]
  - Aphasia [Unknown]

NARRATIVE: CASE EVENT DATE: 20251110
